FAERS Safety Report 7948764 (Version 2)
Quarter: 2013Q1

REPORT INFORMATION
  Report Type: Spontaneous
  Country: US (occurrence: US)
  Receive Date: 20110517
  Receipt Date: 20130318
  Transmission Date: 20140127
  Serious: Yes (Hospitalization)
  Sender: FDA-Public Use
  Company Number: US-B.I. PHARMACEUTICALS,INC./RIDGEFIELD-2011-BP-12722BP

PATIENT
  Age: 79 Year
  Sex: Female

DRUGS (12)
  1. PRADAXA [Suspect]
     Indication: ATRIAL FIBRILLATION
     Dosage: 300 MG
     Route: 048
     Dates: start: 2010
  2. CARDURA [Concomitant]
     Indication: HYPERTENSION
  3. TOPROL [Concomitant]
     Indication: HYPERTENSION
  4. DILTIAZEM [Concomitant]
     Indication: HYPERTENSION
  5. NORVASC [Concomitant]
     Indication: HYPERTENSION
  6. HCTZ [Concomitant]
     Indication: HYPERTENSION
  7. ACCUPRIL [Concomitant]
     Indication: HYPERTENSION
  8. POTASSIUM [Concomitant]
     Indication: PROPHYLAXIS
  9. AGGRENOX [Concomitant]
     Indication: ATRIAL FIBRILLATION
  10. MULTAQ [Concomitant]
     Indication: ATRIAL FIBRILLATION
  11. REQUIP [Concomitant]
     Indication: RESTLESS LEGS SYNDROME
  12. NEURONTIN [Concomitant]
     Indication: RESTLESS LEGS SYNDROME

REACTIONS (6)
  - Respiratory disorder [Not Recovered/Not Resolved]
  - Dyspnoea [Not Recovered/Not Resolved]
  - Heart rate decreased [Not Recovered/Not Resolved]
  - Atrial fibrillation [Recovered/Resolved]
  - Visual acuity reduced [Not Recovered/Not Resolved]
  - Fatigue [Recovered/Resolved]
